FAERS Safety Report 6769665-3 (Version None)
Quarter: 2010Q2

REPORT INFORMATION
  Report Type: 
  Country: None (occurrence: None)
  Receive Date: 20100603
  Receipt Date: 20100519
  Transmission Date: 20101027
  Serious: Yes (Other)
  Sender: FDA-Public Use
  Company Number: 2010SP014540

PATIENT
  Age: 27 Year
  Sex: Female
  Weight: 56 kg

DRUGS (2)
  1. NOVIAL (DESOGESTREL/ETHINYLESTRADIOL /00570801/) [Suspect]
     Indication: DRUG USE FOR UNKNOWN INDICATION
     Dates: start: 20050511, end: 20091214
  2. NUVARING [Suspect]
     Indication: CONTRACEPTION
     Dates: start: 20100201

REACTIONS (3)
  - BLOOD CHOLESTEROL INCREASED [None]
  - CHOLELITHIASIS [None]
  - LOW DENSITY LIPOPROTEIN INCREASED [None]
